FAERS Safety Report 9681965 (Version 1)
Quarter: 2013Q4

REPORT INFORMATION
  Report Type: Report from Study
  Country: US (occurrence: US)
  Receive Date: 20131111
  Receipt Date: 20131111
  Transmission Date: 20140711
  Serious: Yes (Hospitalization)
  Sender: FDA-Public Use
  Company Number: US-US-EMD SERONO, INC.-7248430

PATIENT
  Age: 71 Year
  Sex: Male

DRUGS (1)
  1. SAIZEN [(SOMATROPIN (RDNA ORIGIN) FOR INJECTION)] [Suspect]
     Indication: HYPOPITUITARISM
     Route: 058
     Dates: start: 20131101

REACTIONS (2)
  - Haematochezia [Unknown]
  - Haemoglobin decreased [Unknown]
